FAERS Safety Report 5242817-X (Version None)
Quarter: 2007Q1

REPORT INFORMATION
  Report Type: 
  Country: None (occurrence: None)
  Receive Date: 20070221
  Receipt Date: 20070220
  Transmission Date: 20070707
  Serious: Yes (Other)
  Sender: FDA-Public Use
  Company Number: US-GLAXOSMITHKLINE-A0639985A

PATIENT
  Age: 62 Year
  Sex: Male

DRUGS (7)
  1. CITRUCEL SUGAR-FREE SUSPENSION ORANGE [Suspect]
     Route: 048
  2. ASPIRIN [Concomitant]
  3. TOPROL-XL [Concomitant]
  4. PRILOSEC [Concomitant]
  5. VYTORIN [Concomitant]
  6. TERAZOSIN HCL [Concomitant]
  7. STOOL SOFTENER [Concomitant]

REACTIONS (7)
  - COLONIC POLYP [None]
  - DIARRHOEA [None]
  - FLATULENCE [None]
  - GASTROINTESTINAL DISORDER [None]
  - HAEMATOCHEZIA [None]
  - MUCOUS STOOLS [None]
  - RECTAL HAEMORRHAGE [None]
